FAERS Safety Report 18372287 (Version 1)
Quarter: 2020Q4

REPORT INFORMATION
  Report Type: Report from Study
  Country: ES (occurrence: ES)
  Receive Date: 20201012
  Receipt Date: 20201012
  Transmission Date: 20210114
  Serious: Yes (Other)
  Sender: FDA-Public Use
  Company Number: ES-JNJFOC-20200725354

PATIENT
  Age: 36 Year
  Sex: Female
  Weight: 70 kg

DRUGS (7)
  1. SPRAVATO [Suspect]
     Active Substance: ESKETAMINE
     Dosage: FOR 2 WEEKS
  2. SPRAVATO [Suspect]
     Active Substance: ESKETAMINE
  3. DESVENLAFAXINE. [Concomitant]
     Active Substance: DESVENLAFAXINE
     Dates: start: 20200714
  4. SPRAVATO [Suspect]
     Active Substance: ESKETAMINE
     Indication: DEPRESSION
     Dosage: 8 SESSIONS
     Dates: start: 20200714
  5. LORAZEPAM. [Concomitant]
     Active Substance: LORAZEPAM
  6. CLONAZEPAM. [Concomitant]
     Active Substance: CLONAZEPAM
  7. SERTRALINE [Concomitant]
     Active Substance: SERTRALINE HYDROCHLORIDE
     Dates: start: 20200714

REACTIONS (12)
  - Dysgeusia [Recovered/Resolved]
  - Salivary hypersecretion [Recovered/Resolved]
  - Choking sensation [Recovered/Resolved]
  - Taste disorder [Recovered/Resolved]
  - Anxiety [Recovered/Resolved]
  - Nausea [Recovered/Resolved]
  - Self-injurious ideation [Unknown]
  - Vomiting [Recovered/Resolved]
  - Sedation [Recovered/Resolved]
  - Mood swings [Recovered/Resolved]
  - Post-traumatic stress disorder [Unknown]
  - Hypoaesthesia [Recovered/Resolved]

NARRATIVE: CASE EVENT DATE: 20200714
